FAERS Safety Report 21095551 (Version 3)
Quarter: 2022Q3

REPORT INFORMATION
  Report Type: Spontaneous
  Country: BR (occurrence: BR)
  Receive Date: 20220718
  Receipt Date: 20220901
  Transmission Date: 20221026
  Serious: Yes (Other)
  Sender: FDA-Public Use
  Company Number: BR-NOVARTISPH-NVSC2022BR161874

PATIENT
  Age: 83 Year
  Sex: Female

DRUGS (1)
  1. TEGRETOL XR [Suspect]
     Active Substance: CARBAMAZEPINE
     Indication: Neuralgia
     Dosage: 200 MG, (60 COATED TABLETS) (200 OT)
     Route: 065

REACTIONS (6)
  - Pain [Not Recovered/Not Resolved]
  - Glaucoma [Unknown]
  - Chest discomfort [Not Recovered/Not Resolved]
  - Hypertension [Unknown]
  - Expired product administered [Unknown]
  - Wrong technique in product usage process [Unknown]
